FAERS Safety Report 9957326 (Version 1)
Quarter: 2014Q1

REPORT INFORMATION
  Report Type: Report from Study
  Country: US (occurrence: US)
  Receive Date: 20140304
  Receipt Date: 20140304
  Transmission Date: 20141002
  Serious: No
  Sender: FDA-Public Use
  Company Number: US-ABBVIE-13P-163-1096787-00

PATIENT
  Age: 30 Year
  Sex: Female

DRUGS (3)
  1. HUMIRA [Suspect]
     Indication: COLITIS ULCERATIVE
     Dates: start: 20130202
  2. ALBUTEROL [Concomitant]
     Indication: ASTHMA
  3. CHANTIX [Concomitant]
     Indication: EX-TOBACCO USER
     Dosage: 0.5MG   UNSURE OF DOSE DAILY

REACTIONS (1)
  - Injection site mass [Recovering/Resolving]
